FAERS Safety Report 5238069-7 (Version None)
Quarter: 2007Q1

REPORT INFORMATION
  Report Type: 
  Country: None (occurrence: None)
  Receive Date: 20070209
  Receipt Date: 20070209
  Transmission Date: 20070707
  Serious: Yes (Life-Threatening, Hospitalization)
  Sender: FDA-Public Use
  Company Number: None

PATIENT
  Age: 21 Year
  Sex: Male
  Weight: 50.3493 kg

DRUGS (1)
  1. ZOSYN [Suspect]
     Indication: BETA HAEMOLYTIC STREPTOCOCCAL INFECTION
     Dosage: 3.375G Q6HRS IV
     Route: 042
     Dates: start: 20070126, end: 20070203

REACTIONS (1)
  - ANAEMIA HAEMOLYTIC AUTOIMMUNE [None]
